FAERS Safety Report 15747902 (Version 1)
Quarter: 2018Q4

REPORT INFORMATION
  Report Type: Spontaneous
  Country: DK (occurrence: DK)
  Receive Date: 20181221
  Receipt Date: 20181221
  Transmission Date: 20190205
  Serious: Yes (Life-Threatening, Hospitalization)
  Sender: FDA-Public Use
  Company Number: DK-TEVA-2018-DK-988970

PATIENT
  Age: 47 Year
  Sex: Female

DRUGS (12)
  1. PREDNISOLONE. [Concomitant]
     Active Substance: PREDNISOLONE
     Indication: ADRENOCORTICAL STEROID THERAPY
     Dosage: 200 MILLIGRAM DAILY; STRENGTH: 50 MG.
     Route: 048
     Dates: start: 20171223
  2. CIRCADIN [Concomitant]
     Active Substance: MELATONIN
     Indication: INSOMNIA
     Dosage: STRENGTH: 2 MG: DOSE: 2-3 TABLETS P.N.
     Route: 048
     Dates: start: 20171205
  3. NORITREN [Concomitant]
     Active Substance: NORTRIPTYLINE HYDROCHLORIDE
     Indication: DEPRESSION
     Dosage: 125 MILLIGRAM DAILY; STRENGTH: 50 MG + 25 MG.
     Route: 048
     Dates: start: 20131018
  4. METOCLOPRAMIDE. [Concomitant]
     Active Substance: METOCLOPRAMIDE
     Indication: ADVERSE DRUG REACTION
     Dosage: STRENGTH: 10 MG. DOSE: 3 TABLETS PN., MAXIMUM 4 TIMES DAILY.
     Route: 048
     Dates: start: 20180803
  5. OXABENZ [Concomitant]
     Active Substance: OXAZEPAM
     Indication: SEDATIVE THERAPY
     Dosage: STRENGTH: 15 MG. DOSE: 0.5 TABLET PN., NOT MORE THAN 3 TIMES DAILY.
     Route: 048
  6. IMOZOP [Concomitant]
     Active Substance: ZOPICLONE
     Indication: INSOMNIA
     Dosage: 3.75 MILLIGRAM DAILY; STRENGTH: 3.75 MG
     Route: 048
     Dates: start: 20140828
  7. ETOPOSIDE. [Suspect]
     Active Substance: ETOPOSIDE
     Indication: SMALL CELL LUNG CANCER
     Dosage: STRENGTH: 180 MG.
     Route: 042
     Dates: start: 20181029
  8. TRUXAL [Concomitant]
     Active Substance: CHLORPROTHIXENE
     Indication: SEDATIVE THERAPY
     Dosage: 50 MILLIGRAM DAILY; STRENGTH: 25 MG.
     Route: 048
     Dates: start: 20131017
  9. PANTOLOC [Concomitant]
     Active Substance: PANTOPRAZOLE SODIUM
     Indication: GASTRIC ULCER
     Dosage: 40 MILLIGRAM DAILY; STRENGTH: 40 MG.
     Route: 048
     Dates: start: 20171205
  10. CARBOPLATIN. [Suspect]
     Active Substance: CARBOPLATIN
     Indication: SMALL CELL LUNG CANCER
     Dosage: STRENGTH: 10 MG/ML. DOSE: 540 MG AS A SINGLE DOSE.
     Route: 042
     Dates: start: 20181029
  11. LITAREX [Concomitant]
     Indication: DEPRESSION
     Dosage: 3.5 DOSAGE FORMS DAILY; STRENGTH:  6 MMOL LI+.
     Route: 048
     Dates: start: 20130819
  12. AIROMIR [Concomitant]
     Active Substance: ALBUTEROL SULFATE
     Indication: ASTHMA
     Dosage: STRENGTH: 0.1 MG/DOSE
     Route: 055
     Dates: start: 20150205

REACTIONS (2)
  - Stenosis [Recovering/Resolving]
  - Acute myocardial infarction [Recovering/Resolving]

NARRATIVE: CASE EVENT DATE: 201811
